FAERS Safety Report 18854725 (Version 8)
Quarter: 2022Q1

REPORT INFORMATION
  Report Type: Report from Study
  Country: JP (occurrence: None)
  Receive Date: 20210205
  Receipt Date: 20220126
  Transmission Date: 20220423
  Serious: Yes (Death, Life-Threatening)
  Sender: FDA-Public Use
  Company Number: JP-ROCHE-2761760

PATIENT
  Age: 72 Year
  Sex: Female
  Weight: 66.2 kg

DRUGS (25)
  1. BEVACIZUMAB [Suspect]
     Active Substance: BEVACIZUMAB
     Indication: Small cell lung cancer extensive stage
     Dosage: DATE OF MOST RECENT DOSE (993 MG) OF BEVACIZUMAB/PLACEBO PRIOR TO ADVERSE EVENT ONSET 13/JAN/2021
     Route: 042
     Dates: start: 20201221
  2. ATEZOLIZUMAB [Suspect]
     Active Substance: ATEZOLIZUMAB
     Indication: Small cell lung cancer extensive stage
     Dosage: DATE OF MOST RECENT DOSE OF ATEZOLIZUMAB PRIOR TO ADVERSE EVENT ONSET 13/JAN/2021 1200 MG?DATE OF MO
     Route: 042
     Dates: start: 20201221
  3. CARBOPLATIN [Suspect]
     Active Substance: CARBOPLATIN
     Indication: Small cell lung cancer extensive stage
     Dosage: DATE OF MOST RECENT DOSE OF CARBOPLATIN PRIOR TO ADVERSE EVENT ONSET: 13/JAN/2021 317.67 MG?AS PER P
     Route: 042
     Dates: start: 20201221
  4. ETOPOSIDE [Suspect]
     Active Substance: ETOPOSIDE
     Indication: Small cell lung cancer extensive stage
     Dosage: DATE OF MOST RECENT DOSE OF ETOPOSIDE PRIOR TO ADVERSE EVENT ONSET: 15/JAN/2021 97.68 MG
     Route: 042
     Dates: start: 20201221
  5. CISPLATIN [Suspect]
     Active Substance: CISPLATIN
     Indication: Small cell lung cancer extensive stage
     Dosage: DATE OF MOST RECENT DOSE OF CISPLATIN PRIOR TO AE ONSET: 13/JAN/2021?OVER 1 TO 2 HOURS AT A DOSE OF
     Route: 042
  6. ENALAPRIL [Concomitant]
     Active Substance: ENALAPRIL
     Indication: Hypertension
     Route: 048
  7. TENORMIN [Concomitant]
     Active Substance: ATENOLOL
     Indication: Hypertension
     Route: 048
  8. FEBUXOSTAT [Concomitant]
     Active Substance: FEBUXOSTAT
     Indication: Hyperlipidaemia
     Route: 048
  9. MAGNESIUM OXIDE [Concomitant]
     Active Substance: MAGNESIUM OXIDE
     Indication: Hyperuricaemia
     Route: 048
  10. PILSICAINIDE HYDROCHLORIDE [Concomitant]
     Active Substance: PILSICAINIDE HYDROCHLORIDE
     Indication: Atrial fibrillation
     Route: 048
  11. ZETIA [Concomitant]
     Active Substance: EZETIMIBE
     Indication: Constipation
     Route: 048
  12. HEPARINOID [Concomitant]
     Route: 050
  13. ZOLPIDEM TARTRATE [Concomitant]
     Active Substance: ZOLPIDEM TARTRATE
     Indication: Insomnia
     Route: 048
     Dates: start: 20201223
  14. GRANISETRON [Concomitant]
     Active Substance: GRANISETRON
     Route: 042
     Dates: start: 20201221
  15. SENNOSIDES [Concomitant]
     Active Substance: SENNOSIDES
     Indication: Constipation
     Route: 048
  16. PEGFILGRASTIM [Concomitant]
     Active Substance: PEGFILGRASTIM
     Route: 058
     Dates: start: 20201225
  17. NAUZELIN [Concomitant]
     Active Substance: DOMPERIDONE
     Indication: Nausea
     Route: 048
     Dates: start: 20201225
  18. LOPEMIN [Concomitant]
     Indication: Diarrhoea
     Route: 048
     Dates: start: 20201229
  19. ACETAMINOPHEN [Concomitant]
     Active Substance: ACETAMINOPHEN
     Indication: Febrile neutropenia
     Dosage: ONGOING
     Route: 048
     Dates: start: 20201229
  20. HACHIAZULE [Concomitant]
     Dosage: ONGOING
     Route: 050
     Dates: start: 20201231
  21. AMINO ACIDS\DEXTROSE\ELECTROLYTES NOS\VITAMINS [Concomitant]
     Active Substance: AMINO ACIDS\DEXTROSE\ELECTROLYTES NOS\VITAMINS
     Indication: Decreased appetite
     Route: 042
     Dates: start: 20201229
  22. CEFEPIME HYDROCHLORIDE [Concomitant]
     Active Substance: CEFEPIME HYDROCHLORIDE
     Indication: Febrile neutropenia
     Route: 042
     Dates: start: 20201229, end: 20210104
  23. DIETARY SUPPLEMENT\PROBIOTICS [Concomitant]
     Active Substance: DIETARY SUPPLEMENT\PROBIOTICS
     Indication: Diarrhoea
     Route: 048
     Dates: start: 20210102
  24. LECICARBON (JAPAN) [Concomitant]
     Indication: Constipation
     Dosage: ONGOING
     Route: 050
     Dates: start: 20210113
  25. NERIZA [Concomitant]
     Indication: Constipation
     Dosage: ONGOING
     Route: 050
     Dates: start: 20210114

REACTIONS (2)
  - Ventricular arrhythmia [Fatal]
  - Myocarditis [Not Recovered/Not Resolved]

NARRATIVE: CASE EVENT DATE: 20210201
